FAERS Safety Report 20364402 (Version 2)
Quarter: 2022Q1

REPORT INFORMATION
  Report Type: Report from Study
  Country: MX (occurrence: MX)
  Receive Date: 20220121
  Receipt Date: 20220124
  Transmission Date: 20220423
  Serious: Yes (Disabling, Other)
  Sender: FDA-Public Use
  Company Number: MX-ABBVIE-22K-107-4244771-00

PATIENT
  Age: 75 Year
  Sex: Female
  Weight: 69 kg

DRUGS (2)
  1. HUMIRA [Suspect]
     Active Substance: ADALIMUMAB
     Indication: Crohn^s disease
     Route: 058
     Dates: start: 20190128, end: 202112
  2. HUMIRA [Suspect]
     Active Substance: ADALIMUMAB
     Route: 058
     Dates: start: 202112

REACTIONS (5)
  - Lung disorder [Recovering/Resolving]
  - Asphyxia [Recovering/Resolving]
  - Cardiomegaly [Recovering/Resolving]
  - Gait disturbance [Recovering/Resolving]
  - Blood pressure fluctuation [Unknown]

NARRATIVE: CASE EVENT DATE: 20210701
